FAERS Safety Report 9215338 (Version 5)
Quarter: 2013Q3

REPORT INFORMATION
  Report Type: Report from Study
  Country: JP (occurrence: JP)
  Receive Date: 20130405
  Receipt Date: 20130919
  Transmission Date: 20140515
  Serious: Yes (Life-Threatening, Hospitalization, Disabling, Other)
  Sender: FDA-Public Use
  Company Number: JP-GILEAD-2013-0072860

PATIENT
  Age: 60 Year
  Sex: Female

DRUGS (40)
  1. AMBRISENTAN [Suspect]
     Indication: PULMONARY HYPERTENSION
     Dosage: 2.5 MG, QD
     Route: 048
     Dates: start: 20110308, end: 20110423
  2. AMBRISENTAN [Suspect]
     Dosage: 5 MG, QD
     Route: 048
     Dates: start: 20110424, end: 20111204
  3. AMBRISENTAN [Suspect]
     Dosage: 7.5 MG, QD
     Route: 048
     Dates: start: 20111205, end: 20111205
  4. ADCIRCA [Concomitant]
     Indication: PULMONARY HYPERTENSION
     Dosage: UNK
     Route: 048
     Dates: start: 20120220
  5. REVATIO [Concomitant]
     Indication: PULMONARY HYPERTENSION
     Route: 048
     Dates: start: 20110222, end: 20120220
  6. TRACLEER                           /01587701/ [Concomitant]
     Indication: PULMONARY HYPERTENSION
     Route: 048
     Dates: start: 20070925, end: 20110307
  7. CARELOAD [Concomitant]
     Indication: PULMONARY HYPERTENSION
     Route: 048
     Dates: start: 20071010
  8. WARFARIN [Concomitant]
     Indication: PULMONARY HYPERTENSION
     Route: 048
  9. WARFARIN [Concomitant]
     Route: 048
  10. WARFARIN [Concomitant]
     Route: 048
  11. WARFARIN [Concomitant]
     Route: 048
  12. FUROSEMIDE [Concomitant]
     Indication: PULMONARY HYPERTENSION
     Route: 048
  13. FUROSEMIDE [Concomitant]
     Route: 048
  14. FUROSEMIDE [Concomitant]
     Route: 048
  15. FUROSEMIDE [Concomitant]
     Route: 048
  16. ALDACTONE A [Concomitant]
     Indication: PULMONARY HYPERTENSION
     Route: 048
  17. ALDACTONE A [Concomitant]
     Route: 048
  18. ALDACTONE A [Concomitant]
     Route: 048
  19. ALDACTONE A [Concomitant]
     Route: 048
  20. FLUITRAN [Concomitant]
     Indication: PULMONARY HYPERTENSION
     Route: 048
  21. FLUITRAN [Concomitant]
     Route: 048
  22. FLUITRAN [Concomitant]
     Route: 048
  23. FLUITRAN [Concomitant]
     Route: 048
  24. HALFDIGOXIN [Concomitant]
     Indication: PULMONARY HYPERTENSION
     Route: 048
  25. HALFDIGOXIN [Concomitant]
     Route: 048
  26. HALFDIGOXIN [Concomitant]
     Route: 048
  27. HALFDIGOXIN [Concomitant]
     Route: 048
  28. CEFAMEZIN                          /00288502/ [Concomitant]
     Dates: end: 20110316
  29. KEFRAL [Concomitant]
     Route: 048
     Dates: start: 20110316, end: 20110509
  30. ALOSITOL [Concomitant]
     Route: 048
  31. ALOSITOL [Concomitant]
     Route: 048
  32. ALOSITOL [Concomitant]
     Route: 048
  33. ALOSITOL [Concomitant]
     Route: 048
  34. PARIET [Concomitant]
     Dosage: UNK
     Route: 048
  35. PARIET [Concomitant]
     Route: 048
  36. PARIET [Concomitant]
     Route: 048
  37. FERO-GRADUMET [Concomitant]
     Route: 048
  38. FERO-GRADUMET [Concomitant]
     Route: 048
  39. FERO-GRADUMET [Concomitant]
     Route: 048
  40. FERO-GRADUMET [Concomitant]
     Route: 048

REACTIONS (10)
  - Right ventricular failure [Recovered/Resolved]
  - Anaemia [Recovering/Resolving]
  - Right ventricular failure [Recovered/Resolved]
  - Renal impairment [Not Recovered/Not Resolved]
  - Fluid retention [Recovered/Resolved]
  - Fluid retention [Recovered/Resolved]
  - Haemoptysis [Recovered/Resolved]
  - Haemoptysis [Recovered/Resolved]
  - Anaemia [Recovering/Resolving]
  - Anaemia [Recovering/Resolving]
